FAERS Safety Report 21755464 (Version 2)
Quarter: 2024Q2

REPORT INFORMATION
  Report Type: Report from Study
  Country: US (occurrence: US)
  Receive Date: 20221220
  Receipt Date: 20240424
  Transmission Date: 20240716
  Serious: No
  Sender: FDA-Public Use
  Company Number: US-ABBVIE-22K-163-4527566-00

PATIENT
  Sex: Female

DRUGS (2)
  1. HUMIRA [Suspect]
     Active Substance: ADALIMUMAB
     Indication: Psoriasis
     Dosage: CITRATE FREE
     Route: 058
     Dates: end: 20220803
  2. HUMIRA [Suspect]
     Active Substance: ADALIMUMAB
     Dosage: FORM STRENGTH 40 MILLIGRAM?CITRATE FREE
     Route: 058

REACTIONS (4)
  - Vulvovaginal pruritus [Not Recovered/Not Resolved]
  - Diarrhoea [Unknown]
  - Fungal infection [Not Recovered/Not Resolved]
  - Lichen sclerosus [Unknown]
